FAERS Safety Report 7929996-8 (Version None)
Quarter: 2011Q4

REPORT INFORMATION
  Report Type: 
  Country: None (occurrence: None)
  Receive Date: 20111121
  Receipt Date: 20111110
  Transmission Date: 20120403
  Serious: Yes (Other)
  Sender: FDA-Public Use
  Company Number: JP-SANOFI-AVENTIS-2011SA075009

PATIENT
  Age: 62 Year
  Sex: Female

DRUGS (3)
  1. RHEUMATREX [Concomitant]
     Dosage: FREQUENCY : 20MG X (SAT)2T                                  (SUN)T
     Route: 048
  2. ALENDRONATE SODIUM [Concomitant]
     Route: 048
  3. ENOXAPARIN SODIUM [Suspect]
     Route: 058
     Dates: start: 20111101, end: 20111107

REACTIONS (3)
  - ALANINE AMINOTRANSFERASE INCREASED [None]
  - ASPARTATE AMINOTRANSFERASE INCREASED [None]
  - BLOOD LACTATE DEHYDROGENASE INCREASED [None]
